FAERS Safety Report 8984324 (Version 1)
Quarter: 2012Q4

REPORT INFORMATION
  Report Type: Spontaneous
  Country: IN (occurrence: None)
  Receive Date: 20121212
  Receipt Date: 20121212
  Transmission Date: 20130627
  Serious: Yes (Other)
  Sender: FDA-Public Use
  Company Number: CIP-2012-00441

PATIENT
  Age: 49 Year
  Sex: Male

DRUGS (2)
  1. LEVOFLOXACIN (LEVOFLOXACIN) [Suspect]
     Indication: MAXILLARY SINUSITIS
     Dosage: 500  mg  (500  mg,  1 in 1 D),  Oral
unknown  -  unknown
     Route: 048
  2. LEVOFLOXACIN (LEVOFLOXACIN) [Suspect]
     Indication: ETHMOIDAL SINUSITIS
     Dosage: 500  mg  (500  mg,  1 in 1 D),  Oral
unknown  -  unknown
     Route: 048

REACTIONS (4)
  - Optic neuritis [None]
  - Respiratory distress [None]
  - Confusional state [None]
  - Pain [None]
